FAERS Safety Report 12388216 (Version 1)
Quarter: 2016Q2

REPORT INFORMATION
  Report Type: Spontaneous
  Country: FR (occurrence: FR)
  Receive Date: 20160520
  Receipt Date: 20160520
  Transmission Date: 20160815
  Serious: Yes (Hospitalization, Other)
  Sender: FDA-Public Use
  Company Number: FR-BRISTOL-MYERS SQUIBB COMPANY-BMS-2016-037272

PATIENT
  Age: 88 Year
  Sex: Female

DRUGS (7)
  1. XANAX [Concomitant]
     Active Substance: ALPRAZOLAM
     Indication: ANXIETY
     Dosage: 2 DF, QD
     Route: 065
  2. DOLIPRANE [Concomitant]
     Active Substance: ACETAMINOPHEN
     Indication: PAIN
     Route: 048
  3. LOXEN L P [Concomitant]
     Indication: HYPERTENSION
     Dosage: 2 DF, QD
     Route: 065
  4. IDEOS [Concomitant]
     Active Substance: CALCIUM CARBONATE\CHOLECALCIFEROL
     Indication: VITAMIN D DEFICIENCY
     Dosage: 2 DF, QD
     Route: 065
  5. ALPHAGAN P [Concomitant]
     Active Substance: BRIMONIDINE TARTRATE
     Indication: GLAUCOMA
     Dosage: 2 U, QD, 2 DROPS
     Route: 065
  6. COUMADINE [Suspect]
     Active Substance: WARFARIN SODIUM
     Indication: ATRIAL FIBRILLATION
     Dosage: 2 MG, QD
     Route: 048
     Dates: end: 20160321
  7. MOVICOL [Concomitant]
     Active Substance: POLYETHYLENE GLYCOL 3350\POTASSIUM CHLORIDE\SODIUM BICARBONATE\SODIUM CHLORIDE
     Indication: CONSTIPATION
     Dosage: 1 DF, QD
     Route: 065

REACTIONS (7)
  - Urinary tract infection [Unknown]
  - Fall [Unknown]
  - Craniocerebral injury [Unknown]
  - Cerebral haematoma [Recovered/Resolved with Sequelae]
  - Haematoma [Unknown]
  - Upper limb fracture [Unknown]
  - Cholecystitis [Unknown]

NARRATIVE: CASE EVENT DATE: 20160320
